FAERS Safety Report 7523484-9 (Version None)
Quarter: 2011Q2

REPORT INFORMATION
  Report Type: 
  Country: None (occurrence: None)
  Receive Date: 20110603
  Receipt Date: 20091226
  Transmission Date: 20111010
  Serious: Yes (Death, Other)
  Sender: FDA-Public Use
  Company Number: US-BAYER-200943302NA

PATIENT
  Age: 67 Year
  Sex: Male
  Weight: 79 kg

DRUGS (28)
  1. TRASYLOL [Suspect]
     Dosage: 50 ML/HOUR.
     Route: 042
     Dates: start: 20031029, end: 20031029
  2. LASIX [Concomitant]
     Dosage: 80 +#8211; 100 MG BOLUSES
     Route: 042
     Dates: start: 20031027, end: 20031101
  3. DOPAMINE HCL [Concomitant]
     Dosage: 2MCK/KG/MINUTE
     Route: 042
     Dates: start: 20031029, end: 20031109
  4. AMICAR [Concomitant]
     Dosage: 5 GM BOLUS
     Route: 042
     Dates: start: 20031029, end: 20031029
  5. NAFCILLIN [Concomitant]
     Dosage: UNK
     Route: 042
     Dates: start: 20031017
  6. PROTAMINE SULFATE [Concomitant]
     Dosage: 100 MG
     Route: 042
     Dates: start: 20031029, end: 20031102
  7. HYDROCHLOROTHIAZIDE [Concomitant]
     Dosage: 25 MG, QD
     Dates: end: 20031001
  8. TEQUIN [Concomitant]
     Dosage: 200 MG, QD
     Route: 048
     Dates: start: 20030901, end: 20031104
  9. LEVAQUIN [Concomitant]
     Dosage: 500 MG, QD
     Route: 048
     Dates: start: 20030909, end: 20030901
  10. UNASYN [Concomitant]
     Dosage: 3 G, QD
     Dates: start: 20030901, end: 20031112
  11. ADVIL LIQUI-GELS [Concomitant]
     Dosage: 200 MG, UNK
     Route: 048
     Dates: end: 20031001
  12. CARDIZEM [Concomitant]
     Dosage: 240 MG, QD
     Dates: end: 20031006
  13. PROTAMINE SULFATE [Concomitant]
     Dosage: 300 MG
     Route: 042
     Dates: start: 20031029, end: 20031029
  14. DOPAMINE HCL [Concomitant]
     Dosage: 5 MCG/KG/MINUTE
     Route: 042
     Dates: start: 20031029, end: 20031109
  15. GENTAMYCIN SULFATE [Concomitant]
     Dosage: 140 MG +#8211; 200MG, PHARMACY DOSED ACCORDING TO RENAL PROTOCOL
     Route: 042
     Dates: start: 20030901, end: 20031112
  16. HEPARIN [Concomitant]
     Dosage: 48,000 UNITS
     Route: 042
     Dates: start: 20031029, end: 20031029
  17. CEFAZOLIN [Concomitant]
     Dosage: 1.5 G, UNK
     Route: 042
     Dates: start: 20031029, end: 20031029
  18. INSULIN [Concomitant]
     Dosage: 20 U, UNK
     Route: 042
     Dates: start: 20031029, end: 20031029
  19. EPINEPHRINE [Concomitant]
     Dosage: 4 MCG/MINUTE
     Route: 042
     Dates: start: 20031029, end: 20031102
  20. AMIODARONE HCL [Concomitant]
     Dosage: UNK
     Route: 042
     Dates: start: 20030917, end: 20030919
  21. PROTAMINE SULFATE [Concomitant]
     Dosage: 10 MG, ONCE
     Route: 042
     Dates: start: 20031027, end: 20031027
  22. AMICAR [Concomitant]
     Dosage: 1 GM/HOUR
     Route: 042
     Dates: start: 20031029
  23. ZESTRIL [Concomitant]
     Dosage: 40 MG, QD
     Route: 048
  24. VANCOMYCIN [Concomitant]
     Dosage: 1 GM, PHARMACY DOSED ACCORDING TO RENAL PROTOCOL
     Route: 042
     Dates: start: 20030901, end: 20031112
  25. HEPARIN [Concomitant]
     Dosage: 2,000 UNITS ONCE
     Route: 013
     Dates: start: 20031027, end: 20031027
  26. TRASYLOL [Suspect]
     Indication: POST PROCEDURAL HAEMORRHAGE
     Dosage: TRASYLOL 200 ML BOLUS
     Route: 042
     Dates: start: 20031029
  27. LOVASTATIN [Concomitant]
     Dosage: 10 MG, QD
     Route: 048
     Dates: end: 20031027
  28. TEQUIN [Concomitant]
     Dosage: 200 MG, QD
     Route: 042
     Dates: start: 20030901, end: 20031104

REACTIONS (8)
  - RENAL FAILURE [None]
  - DEATH [None]
  - RENAL INJURY [None]
  - CEREBROVASCULAR ACCIDENT [None]
  - INJURY [None]
  - UNEVALUABLE EVENT [None]
  - RENAL FAILURE ACUTE [None]
  - PAIN [None]
